FAERS Safety Report 6151862-1 (Version None)
Quarter: 2009Q2

REPORT INFORMATION
  Report Type: 
  Country: None (occurrence: None)
  Receive Date: 20090410
  Receipt Date: 20090407
  Transmission Date: 20091009
  Serious: Yes (Other)
  Sender: FDA-Public Use
  Company Number: US-ASTRAZENECA-2007UW10163

PATIENT
  Age: 575 Month
  Sex: Female
  Weight: 126.1 kg

DRUGS (4)
  1. SEROQUEL [Suspect]
     Indication: BIPOLAR DISORDER
     Dosage: 100 TO 200 MG
     Route: 048
     Dates: start: 20040601, end: 20050801
  2. SEROQUEL [Suspect]
     Indication: DEPRESSION
     Dosage: 100 TO 200 MG
     Route: 048
     Dates: start: 20040601, end: 20050801
  3. GEODON [Concomitant]
     Dates: start: 20030101
  4. ZOLOFT [Concomitant]
     Dates: start: 20020101

REACTIONS (7)
  - BLOOD CHOLESTEROL INCREASED [None]
  - DIABETIC NEUROPATHY [None]
  - HYPOGLYCAEMIA [None]
  - KNEE ARTHROPLASTY [None]
  - LIPOMA [None]
  - NEPHROLITHIASIS [None]
  - TYPE 2 DIABETES MELLITUS [None]
